FAERS Safety Report 9983443 (Version 1)
Quarter: 2014Q1

REPORT INFORMATION
  Report Type: Spontaneous
  Country: DE (occurrence: DE)
  Receive Date: 20140307
  Receipt Date: 20140307
  Transmission Date: 20141002
  Serious: Yes (Death, Hospitalization)
  Sender: FDA-Public Use
  Company Number: DE-JNJFOC-20140302229

PATIENT
  Age: 73 Year
  Sex: Male
  Weight: 90 kg

DRUGS (2)
  1. XARELTO [Suspect]
     Indication: EMBOLISM VENOUS
     Route: 048
     Dates: end: 20140214
  2. XARELTO [Suspect]
     Indication: PULMONARY EMBOLISM
     Route: 048
     Dates: end: 20140214

REACTIONS (3)
  - Haemorrhage [Fatal]
  - Compartment syndrome [Fatal]
  - Fasciotomy [Fatal]
